FAERS Safety Report 9642058 (Version 1)
Quarter: 2013Q4

REPORT INFORMATION
  Report Type: Spontaneous
  Country: CZ (occurrence: CZ)
  Receive Date: 20131023
  Receipt Date: 20131023
  Transmission Date: 20140711
  Serious: Yes (Other)
  Sender: FDA-Public Use
  Company Number: PHHY2013CZ115562

PATIENT
  Age: 32 Year
  Sex: Female

DRUGS (18)
  1. BLEOMYCIN [Suspect]
     Indication: DIFFUSE LARGE B-CELL LYMPHOMA
  2. BLEOMYCIN [Suspect]
     Indication: HODGKIN^S DISEASE
  3. ETOPOSIDE [Suspect]
     Indication: HODGKIN^S DISEASE
  4. ETOPOSIDE [Suspect]
     Indication: DIFFUSE LARGE B-CELL LYMPHOMA
  5. VINCRISTINE [Suspect]
     Indication: DIFFUSE LARGE B-CELL LYMPHOMA
  6. VINCRISTINE [Suspect]
     Indication: HODGKIN^S DISEASE
  7. PREDNISONE [Suspect]
     Indication: DIFFUSE LARGE B-CELL LYMPHOMA
  8. PREDNISONE [Suspect]
     Indication: HODGKIN^S DISEASE
  9. DOXORUBICIN [Suspect]
     Indication: HODGKIN^S DISEASE
  10. DOXORUBICIN [Suspect]
     Indication: DIFFUSE LARGE B-CELL LYMPHOMA
  11. CYCLOPHOSPHAMIDE [Suspect]
     Indication: HODGKIN^S DISEASE
  12. CYCLOPHOSPHAMIDE [Suspect]
     Indication: DIFFUSE LARGE B-CELL LYMPHOMA
  13. PROCARBAZINE [Suspect]
     Indication: HODGKIN^S DISEASE
  14. PROCARBAZINE [Suspect]
     Indication: DIFFUSE LARGE B-CELL LYMPHOMA
  15. RITUXIMAB [Suspect]
     Indication: HODGKIN^S DISEASE
     Dosage: 375 MG/M2, UNK
     Route: 042
  16. RITUXIMAB [Suspect]
     Indication: DIFFUSE LARGE B-CELL LYMPHOMA
  17. RADIOTHERAPY [Concomitant]
     Indication: HODGKIN^S DISEASE
  18. RADIOTHERAPY [Concomitant]
     Indication: DIFFUSE LARGE B-CELL LYMPHOMA

REACTIONS (7)
  - Amenorrhoea [Unknown]
  - Polyneuropathy [Unknown]
  - Thrombocytopenia [Unknown]
  - Anaemia [Unknown]
  - Neutropenia [Unknown]
  - Herpes zoster [Unknown]
  - Respiratory tract infection [Unknown]
